FAERS Safety Report 6265945-9 (Version None)
Quarter: 2009Q3

REPORT INFORMATION
  Report Type: 
  Country: None (occurrence: None)
  Receive Date: 20090713
  Receipt Date: 20090703
  Transmission Date: 20100115
  Serious: Yes (Hospitalization)
  Sender: FDA-Public Use
  Company Number: DE-JNJFOC-20090700840

PATIENT
  Age: 69 Year
  Sex: Female
  Weight: 59 kg

DRUGS (4)
  1. DIPIPERON [Suspect]
     Indication: KORSAKOFF'S PSYCHOSIS NON-ALCOHOLIC
     Route: 048
  2. HALOPERIDOL [Suspect]
     Indication: KORSAKOFF'S PSYCHOSIS NON-ALCOHOLIC
     Route: 048
  3. RAMIPRIL [Suspect]
     Indication: HYPERTENSION
     Route: 048
  4. METAMIZOL [Concomitant]
     Indication: PAIN
     Route: 048

REACTIONS (1)
  - HYPONATRAEMIA [None]
